FAERS Safety Report 5062644-6 (Version None)
Quarter: 2006Q3

REPORT INFORMATION
  Report Type: 
  Country: None (occurrence: None)
  Receive Date: 20060721
  Receipt Date: 20060708
  Transmission Date: 20061208
  Serious: Yes (Hospitalization)
  Sender: FDA-Public Use
  Company Number: 2006PV017190

PATIENT
  Age: 54 Year
  Sex: Female
  Weight: 89.3586 kg

DRUGS (4)
  1. BYETTA [Suspect]
     Indication: DIABETES MELLITUS NON-INSULIN-DEPENDENT
     Dosage: 5 MCG; BID; SC
     Route: 058
     Dates: start: 20060419, end: 20060622
  2. BYETTA [Suspect]
     Indication: DIABETES MELLITUS NON-INSULIN-DEPENDENT
     Dosage: 5 MCG; BID; SC
     Route: 058
     Dates: start: 20060625
  3. GLIPIZIDE [Concomitant]
  4. GLUCOPHAGE [Concomitant]

REACTIONS (4)
  - CONDITION AGGRAVATED [None]
  - INGUINAL HERNIA [None]
  - INJECTION SITE BRUISING [None]
  - WEIGHT DECREASED [None]
